FAERS Safety Report 4645576-4 (Version None)
Quarter: 2005Q2

REPORT INFORMATION
  Report Type: 
  Country: None (occurrence: None)
  Receive Date: 20050331
  Receipt Date: 20050128
  Transmission Date: 20051028
  Serious: Yes (Hospitalization)
  Sender: FDA-Public Use
  Company Number: 05P-163-0288521-00

PATIENT
  Age: 78 Year
  Sex: Female
  Weight: 67.3592 kg

DRUGS (7)
  1. HUMIRA [Suspect]
     Indication: RHEUMATOID ARTHRITIS
     Dosage: 40 MG, 1 IN 2 WK, SUBCUTANEOUS
     Route: 058
     Dates: start: 20040506, end: 20041001
  2. IRON [Concomitant]
  3. SPIRONOLACTONE [Concomitant]
  4. RANITIDINE [Concomitant]
  5. VICODIN [Concomitant]
  6. NITROGLYCERIN [Concomitant]
  7. METHOTREXATE [Concomitant]

REACTIONS (5)
  - ATRIAL FIBRILLATION [None]
  - CARDIAC FAILURE CONGESTIVE [None]
  - CONFUSIONAL STATE [None]
  - HEART RATE INCREASED [None]
  - PERICARDIAL EFFUSION [None]
